FAERS Safety Report 16409899 (Version 1)
Quarter: 2019Q2

REPORT INFORMATION
  Report Type: Report from Study
  Country: US (occurrence: US)
  Receive Date: 20190610
  Receipt Date: 20190610
  Transmission Date: 20190711
  Serious: Yes (Death, Other)
  Sender: FDA-Public Use
  Company Number: US-SA-2019SA152864

PATIENT

DRUGS (8)
  1. THIOTEPA. [Suspect]
     Active Substance: THIOTEPA
     Indication: ACUTE MYELOID LEUKAEMIA RECURRENT
     Dosage: 5 MG/KG/DOSE IN 2 DOSES GIVEN 12 HOURS APART ON DAY -3
  2. MELPHALAN. [Suspect]
     Active Substance: MELPHALAN
     Indication: ACUTE MYELOID LEUKAEMIA RECURRENT
     Dosage: 60 MG/M2/DOSE ON DAYS -2 AND -1
  3. CLOFARABINE. [Suspect]
     Active Substance: CLOFARABINE
     Indication: ACUTE MYELOID LEUKAEMIA RECURRENT
     Dosage: 45 MG/M2 X 5 DOSES, QD
  4. GRANULOCYTE COLONY STIMULATING FACTOR [Concomitant]
     Active Substance: GRANULOCYTE COLONY-STIMULATING FACTOR NOS
     Dosage: 5 UG/KG, QD ON DAY +6 AND CONTINUED UNTIL NEUTROPHIL ENGRAFTMENT WAS CONFIRMED
  5. MYCOPHENOLATE MOFETIL. [Concomitant]
     Active Substance: MYCOPHENOLATE MOFETIL
     Indication: PROPHYLAXIS AGAINST GRAFT VERSUS HOST DISEASE
     Dosage: ON DAY ?2 AT 600 MG/M2/DOSE GIVEN TWICE DAILY
  6. FOSPHENYTOIN [Concomitant]
     Active Substance: FOSPHENYTOIN
     Indication: SEIZURE PROPHYLAXIS
  7. RITUXIMAB. [Concomitant]
     Active Substance: RITUXIMAB
     Indication: PROPHYLAXIS
     Dosage: 375 MG/M2 ON DAY ?1
  8. MUROMONAB CD3 [Concomitant]
     Active Substance: MUROMONAB-CD3
     Indication: BONE MARROW CONDITIONING REGIMEN

REACTIONS (3)
  - Toxicity to various agents [Fatal]
  - Respiratory failure [Fatal]
  - Pulmonary veno-occlusive disease [Fatal]
